FAERS Safety Report 5776378-3 (Version None)
Quarter: 2008Q2

REPORT INFORMATION
  Report Type: 
  Country: None (occurrence: None)
  Receive Date: 20080617
  Receipt Date: 20080617
  Transmission Date: 20081010
  Serious: No
  Sender: FDA-Public Use
  Company Number: None

PATIENT
  Age: 35 Year
  Sex: Female

DRUGS (1)
  1. PAROXETINE HCL [Suspect]
     Indication: MIGRAINE WITHOUT AURA
     Dosage: 20MG QD ORAL
     Route: 048
     Dates: start: 20050603, end: 20050603

REACTIONS (1)
  - DRUG INEFFECTIVE [None]
